FAERS Safety Report 8416074-7 (Version None)
Quarter: 2012Q2

REPORT INFORMATION
  Report Type: 
  Country: None (occurrence: None)
  Receive Date: 20120606
  Receipt Date: 20120524
  Transmission Date: 20120825
  Serious: No
  Sender: FDA-Public Use
  Company Number: US-ASTRAZENECA-2012SE34112

PATIENT
  Age: 45 Year
  Sex: Male

DRUGS (3)
  1. NEXIUM [Suspect]
     Route: 048
  2. ZANTAC [Suspect]
     Route: 065
  3. NEXIUM [Suspect]
     Route: 048

REACTIONS (5)
  - MALAISE [None]
  - GASTROOESOPHAGEAL REFLUX DISEASE [None]
  - DRUG DOSE OMISSION [None]
  - DYSPEPSIA [None]
  - INTENTIONAL DRUG MISUSE [None]
